FAERS Safety Report 12990060 (Version 8)
Quarter: 2017Q1

REPORT INFORMATION
  Report Type: Spontaneous
  Country: US (occurrence: US)
  Receive Date: 20161201
  Receipt Date: 20170329
  Transmission Date: 20170428
  Serious: Yes (Hospitalization, Congenital Anomaly, Other)
  Sender: FDA-Public Use
  Company Number: PHEH2016US031110

PATIENT
  Sex: Male

DRUGS (2)
  1. ZOFRAN [Suspect]
     Active Substance: ONDANSETRON HYDROCHLORIDE
     Indication: FOETAL EXPOSURE DURING PREGNANCY
     Dosage: MOTHER DOSE: 08 MG, PRN
     Route: 064
  2. ZOFRAN [Suspect]
     Active Substance: ONDANSETRON HYDROCHLORIDE
     Indication: FOETAL EXPOSURE DURING PREGNANCY
     Dosage: UNK
     Route: 064

REACTIONS (23)
  - Intestinal malrotation [Unknown]
  - Inferior vena cava syndrome [Unknown]
  - Pulmonary artery stenosis [Unknown]
  - Attention deficit/hyperactivity disorder [Unknown]
  - Cardiac murmur [Unknown]
  - Right ventricular hypertrophy [Unknown]
  - Gastroenteritis [Unknown]
  - Injury [Unknown]
  - Dehydration [Unknown]
  - Pulmonary artery atresia [Unknown]
  - Anomalous pulmonary venous connection [Unknown]
  - Foetal exposure during pregnancy [Unknown]
  - Cyanosis neonatal [Unknown]
  - Chest pain [Unknown]
  - Ventricular septal defect [Unknown]
  - Respiratory syncytial virus bronchiolitis [Unknown]
  - Aortic valve incompetence [Unknown]
  - Patent ductus arteriosus [Unknown]
  - Aortic aneurysm [Unknown]
  - Asthma [Unknown]
  - Heart disease congenital [Unknown]
  - Univentricular heart [Unknown]
  - Transposition of the great vessels [Unknown]
